FAERS Safety Report 4658441-3 (Version None)
Quarter: 2005Q2

REPORT INFORMATION
  Report Type: 
  Country: None (occurrence: None)
  Receive Date: 20050510
  Receipt Date: 20050510
  Transmission Date: 20051028
  Serious: Yes (Hospitalization)
  Sender: FDA-Public Use
  Company Number: None

PATIENT
  Age: 66 Year
  Sex: Male
  Weight: 105.6881 kg

DRUGS (8)
  1. CISPLATIN [Suspect]
     Indication: METASTATIC GASTRIC CANCER
     Dosage: 25 MG/MV DAY 1 AND 8 IV
     Route: 042
     Dates: end: 20050421
  2. IRINOTECAN HCL [Suspect]
     Indication: METASTATIC GASTRIC CANCER
     Dosage: 65 MG/MV DAY 1 AND 8 IV
     Route: 042
     Dates: end: 20050421
  3. FLUOROURACIL [Suspect]
     Indication: METASTATIC GASTRIC CANCER
     Dosage: 260 MG/MV IV CONTINUOUS
     Route: 042
     Dates: start: 20050415, end: 20050427
  4. NEXIUM [Concomitant]
  5. LIPITOR [Concomitant]
  6. XANAX [Concomitant]
  7. OYCODONE [Concomitant]
  8. KEFLEX [Concomitant]

REACTIONS (1)
  - FEBRILE NEUTROPENIA [None]
